FAERS Safety Report 5824224-1 (Version None)
Quarter: 2008Q3

REPORT INFORMATION
  Report Type: 
  Country: None (occurrence: None)
  Receive Date: 20080728
  Receipt Date: 20080716
  Transmission Date: 20090109
  Serious: Yes (Other)
  Sender: FDA-Public Use
  Company Number: DE-WYE-H05187208

PATIENT
  Age: 36 Year
  Sex: Male

DRUGS (1)
  1. CORDAREX [Suspect]
     Indication: VENTRICULAR FIBRILLATION
     Dosage: 900 MG ONCE
     Dates: start: 20080101, end: 20080101

REACTIONS (3)
  - ACUTE RESPIRATORY DISTRESS SYNDROME [None]
  - C-REACTIVE PROTEIN INCREASED [None]
  - INTERSTITIAL LUNG DISEASE [None]
